FAERS Safety Report 6893008-8 (Version None)
Quarter: 2010Q3

REPORT INFORMATION
  Report Type: 
  Country: None (occurrence: None)
  Receive Date: 20100731
  Receipt Date: 20090112
  Transmission Date: 20110219
  Serious: Yes (Death, Other)
  Sender: FDA-Public Use
  Company Number: US-PFIZER INC-2008039776

PATIENT
  Sex: Female

DRUGS (5)
  1. NEURONTIN [Suspect]
     Route: 048
  2. GABAPENTIN [Suspect]
     Indication: DIABETIC NEUROPATHY
     Route: 048
     Dates: start: 20060101
  3. GABAPENTIN [Suspect]
     Indication: NEUROPATHY PERIPHERAL
  4. GABAPENTIN [Suspect]
     Indication: RESTLESS LEGS SYNDROME
  5. VICODIN ES [Concomitant]

REACTIONS (4)
  - ANXIETY [None]
  - COMPLETED SUICIDE [None]
  - DRUG INEFFECTIVE FOR UNAPPROVED INDICATION [None]
  - SUICIDAL IDEATION [None]
